FAERS Safety Report 6762560-5 (Version None)
Quarter: 2010Q2

REPORT INFORMATION
  Report Type: 
  Country: None (occurrence: None)
  Receive Date: 20100609
  Receipt Date: 20100527
  Transmission Date: 20101027
  Serious: Yes (Hospitalization, Other)
  Sender: FDA-Public Use
  Company Number: JP-PFIZER INC-2010008039

PATIENT
  Age: 27 Year
  Sex: Male

DRUGS (8)
  1. SEIBULE [Suspect]
     Indication: TYPE 2 DIABETES MELLITUS
     Dosage: 150 MG, UNK
     Route: 048
     Dates: start: 20091120, end: 20091121
  2. OLMETEC [Suspect]
     Dosage: 30 MG, 1X/DAY
     Route: 048
  3. NATRIX [Suspect]
     Dosage: 1 MG, UNK
     Route: 048
  4. ALLOPURINOL [Suspect]
     Dosage: 50 MG, UNK
     Route: 048
  5. SODIUM BICARBONATE [Concomitant]
     Dosage: 3 G, UNK
     Route: 048
  6. NU LOTAN [Concomitant]
     Dosage: 25 MG, UNK
     Route: 048
  7. KREMEZIN [Concomitant]
     Dosage: 6 G, UNK
     Route: 048
  8. HUMALOG MIX [Concomitant]
     Dosage: 34 IU, UNK
     Route: 058
     Dates: start: 20091201

REACTIONS (5)
  - BLOOD CREATINE PHOSPHOKINASE INCREASED [None]
  - DEHYDRATION [None]
  - DIARRHOEA [None]
  - HYPERGLYCAEMIA [None]
  - RENAL IMPAIRMENT [None]
